FAERS Safety Report 11789044 (Version 1)
Quarter: 2015Q4

REPORT INFORMATION
  Report Type: Spontaneous
  Country: US (occurrence: US)
  Receive Date: 20151201
  Receipt Date: 20151201
  Transmission Date: 20160305
  Serious: No
  Sender: FDA-Public Use
  Company Number: US-009507513-1512USA000302

PATIENT
  Sex: Female

DRUGS (2)
  1. GANIRELIX ACETATE INJECTION [Suspect]
     Active Substance: GANIRELIX ACETATE
     Dosage: 250 MICROGRAM, QPM
     Route: 058
  2. FOLLISTIM AQ [Concomitant]
     Active Substance: FOLLITROPIN
     Dosage: 75 UNITS, QPM
     Route: 058

REACTIONS (1)
  - Cough [Recovering/Resolving]
